FAERS Safety Report 6525235-3 (Version None)
Quarter: 2009Q4

REPORT INFORMATION
  Report Type: 
  Country: None (occurrence: None)
  Receive Date: 20091223
  Receipt Date: 20091211
  Transmission Date: 20100525
  Serious: Yes (Other)
  Sender: FDA-Public Use
  Company Number: THQ2007A00259

PATIENT
  Age: 68 Year
  Sex: Male

DRUGS (9)
  1. LANSOPRAZOLE [Suspect]
     Dosage: 30 MG (30 MG,1 IN 1 D)
  2. ACIPIMOX [Suspect]
     Dosage: 500 MG (500 MG,1 IN 1 D)
  3. AMIODARONE MERCH (AMIODARONE) [Suspect]
     Dosage: 200 MG (200 MG,1 IN 1 D)
  4. ASPIRIN [Suspect]
     Dosage: 75 MG (75 MG,1 IN 1 D)
  5. BISOPROLOL FUMARATE [Suspect]
     Dosage: 7.5 MG (7.5 MG,1 IN 1 D)
  6. DIGOXIN [Suspect]
     Dosage: 0.125 MG (0.125 MG,1 IN 1 D)
  7. EZETIMIBE [Suspect]
     Dosage: 10 MG (10 MG,1 IN 1 D); PER ORAL
     Route: 048
  8. FUROSEMIDE [Suspect]
     Dosage: 160 MG (80 MG,2 IN 1 D), 240 MG (120 MG,2 IN 1 D)
  9. PERINDOPRIL ERBUMINE [Suspect]
     Dosage: 2 MG (2 MG,1 IN 1 D)

REACTIONS (13)
  - ATRIAL FIBRILLATION [None]
  - CARDIAC MURMUR [None]
  - DISSOCIATION [None]
  - DIZZINESS [None]
  - DYSPNOEA [None]
  - DYSPNOEA EXERTIONAL [None]
  - FATIGUE [None]
  - FEELING ABNORMAL [None]
  - LEFT VENTRICULAR DYSFUNCTION [None]
  - OEDEMA PERIPHERAL [None]
  - PARAESTHESIA [None]
  - VENOUS PRESSURE JUGULAR INCREASED [None]
  - VENTRICULAR TACHYCARDIA [None]
